FAERS Safety Report 7382894-3 (Version None)
Quarter: 2011Q1

REPORT INFORMATION
  Report Type: 
  Country: None (occurrence: None)
  Receive Date: 20110330
  Receipt Date: 20101007
  Transmission Date: 20110831
  Serious: Yes (Hospitalization)
  Sender: FDA-Public Use
  Company Number: US-BAYER-201034939NA

PATIENT
  Sex: Female
  Weight: 140.59 kg

DRUGS (7)
  1. YASMIN [Suspect]
     Indication: PRODUCT USED FOR UNKNOWN INDICATION
  2. ALTACE [Concomitant]
     Dosage: UNK UNK, QD
  3. YAZ [Suspect]
     Indication: PRODUCT USED FOR UNKNOWN INDICATION
  4. INDERAL [Concomitant]
     Dosage: UNK UNK, QD
  5. OCELLA [Suspect]
  6. METFORMIN HCL [Concomitant]
     Dosage: UNK UNK, QD
  7. PSEUDOEPHEDRINE HCL [Concomitant]
     Dosage: UNK UNK, PRN

REACTIONS (5)
  - HYPERTENSION [None]
  - GALLBLADDER DISORDER [None]
  - BLOOD CHOLESTEROL INCREASED [None]
  - CHEST PAIN [None]
  - CHOLECYSTITIS ACUTE [None]
